FAERS Safety Report 21454176 (Version 5)
Quarter: 2023Q2

REPORT INFORMATION
  Report Type: Spontaneous
  Country: US (occurrence: US)
  Receive Date: 20221013
  Receipt Date: 20230418
  Transmission Date: 20230722
  Serious: Yes (Life-Threatening, Other)
  Sender: FDA-Public Use
  Company Number: US-PFIZER INC-PV202200081465

PATIENT
  Age: 82 Year
  Sex: Male
  Weight: 73.478 kg

DRUGS (24)
  1. VYNDAMAX [Suspect]
     Active Substance: TAFAMIDIS
     Indication: Cardiac amyloidosis
     Dosage: 61 MG
  2. VYNDAMAX [Suspect]
     Active Substance: TAFAMIDIS
     Dosage: 20 MG, 1X/DAY
     Dates: start: 20220801
  3. VYNDAMAX [Suspect]
     Active Substance: TAFAMIDIS
     Dosage: 61 MG, 1X/DAY(TAKE 1 CAP BY MOUTH ONE TIME DAILY-ORAL)
     Route: 048
     Dates: start: 20220809, end: 20230117
  4. VYNDAMAX [Suspect]
     Active Substance: TAFAMIDIS
     Dosage: 61 MG, 1X/DAY
     Route: 048
     Dates: start: 20220901
  5. TYLENOL [Concomitant]
     Active Substance: ACETAMINOPHEN
     Dosage: 500 MG, 2X/DAY(TAKE 500MG BY MOUTH 2 TIMES DAILY)
     Route: 048
  6. MINERALS\VITAMINS [Concomitant]
     Active Substance: MINERALS\VITAMINS
     Dosage: 1 DF, 2X/DAY
     Route: 048
  7. DAPSONE [Concomitant]
     Active Substance: DAPSONE
     Dosage: UNK (DAPSONE 150 MG X 1)
  8. DAPSONE [Concomitant]
     Active Substance: DAPSONE
     Dosage: 1.5 TABLETS BY MOUTH DAILY
     Route: 048
     Dates: start: 20220608, end: 20230118
  9. FERROUS SULFATE [Concomitant]
     Active Substance: FERROUS SULFATE
     Dosage: 325 MG, 2X/DAY(TAKE 325 MG BY MOUTH 2 TIMES DAILY)
     Route: 048
     Dates: start: 20160409
  10. FUROSEMIDE [Concomitant]
     Active Substance: FUROSEMIDE
     Dosage: 3 DF, 2X/DAY; (: TAKE 3 TABS BY MOUTH 2 TIMES DAILY AT MEALTIME)
     Route: 048
  11. HYDROCHLOROTHIAZIDE [Concomitant]
     Active Substance: HYDROCHLOROTHIAZIDE
     Dosage: UNK
  12. CLARITIN [Concomitant]
     Active Substance: LORATADINE
     Dosage: 10 MG, 1X/DAY
     Route: 048
  13. LOSARTAN [Concomitant]
     Active Substance: LOSARTAN
     Dosage: UNK (LOSARTAN 100 MG X 1)
  14. METOPROLOL [Concomitant]
     Active Substance: METOPROLOL
     Dosage: UNK
  15. MINIPRESS [Concomitant]
     Active Substance: PRAZOSIN HYDROCHLORIDE
     Dosage: 2 MG, 2X/DAY(TAKE ONE CAPSULE BY MOUTH TWICE A DAY)
     Route: 048
     Dates: start: 20220215, end: 20230208
  16. TERAZOSIN [Concomitant]
     Active Substance: TERAZOSIN HYDROCHLORIDE
     Dosage: UNK
  17. VITAMIN C [Concomitant]
     Active Substance: ASCORBIC ACID
     Dosage: 500 MG, 1X/DAY
     Route: 048
  18. WARFARIN [Concomitant]
     Active Substance: WARFARIN
     Dosage: UNK (WARFARIN 50 MG X 1)
  19. LASIX [Concomitant]
     Active Substance: FUROSEMIDE
     Dosage: TAKE 3 TABS BY MOUTH 2 TIMES DAILY AT MEALTIME
     Route: 048
  20. LASIX [Concomitant]
     Active Substance: FUROSEMIDE
     Dosage: TAKE 3 TABS BY MOUTH 2 TIMES DAILY AT MEALTIME
     Route: 048
     Dates: start: 20220711, end: 20221108
  21. COZAAR [Concomitant]
     Active Substance: LOSARTAN POTASSIUM
     Dosage: 100 MG, 1X/DAY(TAKE 1 TAB BY MOUTH ONE TIME DAILY)
     Route: 048
     Dates: start: 20220215
  22. COZAAR [Concomitant]
     Active Substance: LOSARTAN POTASSIUM
     Dosage: 100 MG, 2X/DAY
     Route: 048
  23. COUMADIN [Concomitant]
     Active Substance: WARFARIN SODIUM
     Dosage: TAKE 1 TAB BY MOUTH ONE TIME DAILY AY BEDTIME TAKE AS DIRECTED BASED ON INR
     Route: 048
  24. FERROUS SULFATE [FERROUS SULFATE HEPTAHYDRATE] [Concomitant]
     Dosage: 325 MG, 2X/DAY
     Route: 048
     Dates: start: 20160409

REACTIONS (8)
  - Diarrhoea [Not Recovered/Not Resolved]
  - Flatulence [Not Recovered/Not Resolved]
  - Dyspnoea [Not Recovered/Not Resolved]
  - Disease recurrence [Unknown]
  - COVID-19 [Unknown]
  - Sleep disorder [Unknown]
  - Fatigue [Unknown]
  - Hypotension [Unknown]

NARRATIVE: CASE EVENT DATE: 20220101
